FAERS Safety Report 6055750-0 (Version None)
Quarter: 2009Q1

REPORT INFORMATION
  Report Type: 
  Country: None (occurrence: None)
  Receive Date: 20090128
  Receipt Date: 20080714
  Transmission Date: 20090719
  Serious: Yes (Other)
  Sender: FDA-Public Use
  Company Number: JP-ABBOTT-09P-087-0499743-00

PATIENT
  Age: 48 Year
  Sex: Female

DRUGS (5)
  1. CLARITH TAB [Suspect]
     Indication: BRONCHITIS
     Route: 048
     Dates: start: 20080707, end: 20080710
  2. MAOTO GRA [Concomitant]
     Indication: BRONCHITIS
     Route: 048
     Dates: start: 20080707, end: 20080710
  3. CODEINE PHOSPHATE [Concomitant]
     Indication: COUGH
     Route: 048
     Dates: start: 20080707, end: 20080710
  4. AZULENE SULFONATE SODIUM, L-GLUTAMINE [Concomitant]
     Indication: GASTRITIS PROPHYLAXIS
     Route: 048
     Dates: start: 20080707, end: 20080710
  5. BAKUMONDO-TO GRA [Concomitant]
     Indication: COUGH
     Route: 048
     Dates: start: 20080707, end: 20080710

REACTIONS (2)
  - AGEUSIA [None]
  - ANOSMIA [None]
